FAERS Safety Report 23422211 (Version 1)
Quarter: 2024Q1

REPORT INFORMATION
  Report Type: Other
  Country: None (occurrence: GD)
  Receive Date: 20240119
  Receipt Date: 20240119
  Transmission Date: 20240410
  Serious: Yes (Other)
  Sender: FDA-Public Use
  Company Number: GD-B.Braun Medical Inc.-2151597

PATIENT
  Age: 31 Year
  Sex: Female

DRUGS (1)
  1. EPINEPHRINE\LIDOCAINE HYDROCHLORIDE [Suspect]
     Active Substance: EPINEPHRINE\LIDOCAINE HYDROCHLORIDE
     Indication: Spinal anaesthesia

REACTIONS (4)
  - Nystagmus [None]
  - Horner^s syndrome [None]
  - Loss of consciousness [None]
  - Maternal exposure during pregnancy [None]
